FAERS Safety Report 8119714-5 (Version None)
Quarter: 2012Q1

REPORT INFORMATION
  Report Type: 
  Country: None (occurrence: None)
  Receive Date: 20120207
  Receipt Date: 20120203
  Transmission Date: 20120608
  Serious: Yes (Death, Hospitalization)
  Sender: FDA-Public Use
  Company Number: PHHY2011DE113472

PATIENT
  Sex: Female
  Weight: 124 kg

DRUGS (13)
  1. AT1-RECEPTOR BLOCKER [Concomitant]
     Indication: HYPERTENSION
  2. PROTON PUMP INHIBITORS [Concomitant]
  3. AFINITOR [Suspect]
     Indication: RENAL CELL CARCINOMA
     Dosage: 10 MG, DAILY
     Route: 048
     Dates: start: 20111114, end: 20111212
  4. STEROIDS NOS [Concomitant]
     Route: 048
  5. OPIOIDS [Concomitant]
     Indication: PAIN
  6. GABAPENTIN [Concomitant]
     Indication: CONVULSION
  7. NITRIC OXIDE [Concomitant]
     Indication: HYPERTENSION
  8. METAMIZOL [Concomitant]
     Indication: PAIN
  9. PHENPROCOUMON [Concomitant]
     Indication: ANTICOAGULANT THERAPY
  10. BETA BLOCKING AGENTS [Concomitant]
     Indication: HYPERTENSION
  11. ALLOPURINOL [Concomitant]
     Indication: HYPERURICAEMIA
  12. VITAMIN TAB [Concomitant]
  13. MIRTAZAPINE [Concomitant]
     Indication: DEPRESSION

REACTIONS (8)
  - DYSPNOEA [None]
  - PLEURAL EFFUSION [None]
  - NEOPLASM MALIGNANT [None]
  - CARDIOVASCULAR DISORDER [None]
  - MULTI-ORGAN FAILURE [None]
  - RESPIRATORY FAILURE [None]
  - OEDEMA [None]
  - NEOPLASM PROGRESSION [None]
